FAERS Safety Report 22656299 (Version 1)
Quarter: 2023Q2

REPORT INFORMATION
  Report Type: Spontaneous
  Country: CN (occurrence: CN)
  Receive Date: 20230629
  Receipt Date: 20230629
  Transmission Date: 20230721
  Serious: Yes (Hospitalization, Other)
  Sender: FDA-Public Use
  Company Number: CN-009507513-2306CHN012877

PATIENT
  Age: 77 Year
  Sex: Female
  Weight: 37.4 kg

DRUGS (2)
  1. KEYTRUDA [Suspect]
     Active Substance: PEMBROLIZUMAB
     Indication: Lung neoplasm malignant
     Dosage: 100 MG, ONCE
     Route: 041
     Dates: start: 20230604, end: 20230604
  2. SODIUM CHLORIDE [Concomitant]
     Active Substance: SODIUM CHLORIDE
     Route: 041
     Dates: start: 20230604, end: 20230604

REACTIONS (31)
  - Nephropathy toxic [Unknown]
  - Shock [Recovering/Resolving]
  - Hypotension [Unknown]
  - Anuria [Unknown]
  - Altered state of consciousness [Unknown]
  - Acute kidney injury [Unknown]
  - Malignant neoplasm progression [Unknown]
  - Epilepsy [Unknown]
  - Mental disorder [Unknown]
  - Trismus [Unknown]
  - Strabismus [Unknown]
  - Cyanosis [Unknown]
  - Communication disorder [Unknown]
  - Swelling of eyelid [Unknown]
  - Blood creatinine abnormal [Unknown]
  - Blood lactic acid abnormal [Unknown]
  - Blood gases abnormal [Unknown]
  - Inflammatory marker increased [Unknown]
  - Infection [Unknown]
  - Ejection fraction abnormal [Unknown]
  - Urine output decreased [Unknown]
  - Vein collapse [Unknown]
  - Muscle twitching [Recovered/Resolved]
  - Peripheral swelling [Unknown]
  - Platelet count decreased [Unknown]
  - Diarrhoea [Recovering/Resolving]
  - Pyrexia [Recovering/Resolving]
  - Computerised tomogram head abnormal [Unknown]
  - Oxygen saturation decreased [Unknown]
  - Treatment noncompliance [Unknown]
  - Underdose [Unknown]

NARRATIVE: CASE EVENT DATE: 20230601
